FAERS Safety Report 18349275 (Version 1)
Quarter: 2020Q4

REPORT INFORMATION
  Report Type: Spontaneous
  Country: CA (occurrence: CA)
  Receive Date: 20201006
  Receipt Date: 20201006
  Transmission Date: 20210114
  Serious: Yes (Hospitalization)
  Sender: FDA-Public Use
  Company Number: CA-ACCORD-204100

PATIENT
  Age: 73 Year
  Sex: Female
  Weight: 74 kg

DRUGS (18)
  1. DIPHENHYDRAMINE. [Concomitant]
     Active Substance: DIPHENHYDRAMINE
  2. LYRICA [Concomitant]
     Active Substance: PREGABALIN
  3. ROSUVASTATIN/ROSUVASTATIN CALCIUM [Concomitant]
     Active Substance: ROSUVASTATIN CALCIUM
  4. CARBOPLATIN. [Suspect]
     Active Substance: CARBOPLATIN
     Indication: OVARIAN NEOPLASM
  5. RANITIDINE. [Concomitant]
     Active Substance: RANITIDINE
  6. PACLITAXEL/PACLITAXEL LIPOSOME [Suspect]
     Active Substance: PACLITAXEL
     Indication: OVARIAN NEOPLASM
  7. ATIVAN [Concomitant]
     Active Substance: LORAZEPAM
  8. BISOPROLOL [Concomitant]
     Active Substance: BISOPROLOL
  9. LAX-A-DAY [Concomitant]
     Active Substance: POLYETHYLENE GLYCOL 3350
  10. ONDANSETRON [Concomitant]
     Active Substance: ONDANSETRON
  11. POTASSIUM [Concomitant]
     Active Substance: POTASSIUM
  12. LORAZEPAM. [Concomitant]
     Active Substance: LORAZEPAM
  13. MORPHINE [Concomitant]
     Active Substance: MORPHINE
  14. PANTOLOC [Concomitant]
     Active Substance: PANTOPRAZOLE SODIUM
  15. MEROPENEM. [Concomitant]
     Active Substance: MEROPENEM
  16. ELAVIL [Concomitant]
     Active Substance: AMITRIPTYLINE HYDROCHLORIDE
  17. SOLU-CORTEF [Concomitant]
     Active Substance: HYDROCORTISONE SODIUM SUCCINATE
  18. TYLENOL [Concomitant]
     Active Substance: ACETAMINOPHEN
     Dosage: ELIXIR

REACTIONS (2)
  - Febrile neutropenia [Recovered/Resolved]
  - Urinary tract infection [Recovered/Resolved]
